FAERS Safety Report 21035065 (Version 1)
Quarter: 2022Q3

REPORT INFORMATION
  Report Type: Spontaneous
  Country: US (occurrence: US)
  Receive Date: 20220701
  Receipt Date: 20220701
  Transmission Date: 20221027
  Serious: No
  Sender: FDA-Public Use
  Company Number: US-KYOWAKIRIN-2022BKK010246

PATIENT

DRUGS (2)
  1. CRYSVITA [Suspect]
     Active Substance: BUROSUMAB-TWZA
     Indication: Hereditary hypophosphataemic rickets
     Dosage: 20 MG/ML, 1X/4 WEEKS
     Route: 058
     Dates: start: 20190823
  2. CRYSVITA [Suspect]
     Active Substance: BUROSUMAB-TWZA
     Indication: Hereditary hypophosphataemic rickets
     Dosage: 30 MG/ML, 1X/4 WEEKS
     Route: 058
     Dates: start: 20190823

REACTIONS (1)
  - COVID-19 [Unknown]
